FAERS Safety Report 8300985-7 (Version None)
Quarter: 2012Q2

REPORT INFORMATION
  Report Type: 
  Country: None (occurrence: None)
  Receive Date: 20120420
  Receipt Date: 20120412
  Transmission Date: 20120825
  Serious: Yes (Life-Threatening)
  Sender: FDA-Public Use
  Company Number: DE-BRISTOL-MYERS SQUIBB COMPANY-16503716

PATIENT

DRUGS (1)
  1. HYDROXYUREA [Suspect]

REACTIONS (1)
  - DYSPHAGIA [None]
